FAERS Safety Report 24655135 (Version 1)
Quarter: 2024Q4

REPORT INFORMATION
  Report Type: Report from Study
  Country: US (occurrence: US)
  Receive Date: 20241123
  Receipt Date: 20241123
  Transmission Date: 20250115
  Serious: Yes (Other)
  Sender: ALEXION PHARMACEUTICALS
  Company Number: US-AstraZeneca-CH-00749457A

PATIENT

DRUGS (4)
  1. ACALABRUTINIB [Suspect]
     Active Substance: ACALABRUTINIB
     Indication: Product used for unknown indication
  2. ACALABRUTINIB [Suspect]
     Active Substance: ACALABRUTINIB
  3. ACALABRUTINIB [Suspect]
     Active Substance: ACALABRUTINIB
  4. ACALABRUTINIB [Suspect]
     Active Substance: ACALABRUTINIB

REACTIONS (1)
  - Malignant neoplasm progression [Unknown]
